FAERS Safety Report 11104247 (Version 1)
Quarter: 2015Q2

REPORT INFORMATION
  Report Type: Spontaneous
  Country: FR (occurrence: FR)
  Receive Date: 20150511
  Receipt Date: 20150511
  Transmission Date: 20150821
  Serious: Yes (Hospitalization)
  Sender: FDA-Public Use
  Company Number: FR-BAYER-2015-182317

PATIENT
  Age: 59 Year
  Sex: Female

DRUGS (2)
  1. STIVARGA [Suspect]
     Active Substance: REGORAFENIB
     Indication: COLON CANCER METASTATIC
     Dosage: UNK
     Route: 048
     Dates: start: 201503
  2. STIVARGA [Suspect]
     Active Substance: REGORAFENIB
     Indication: COLON CANCER METASTATIC
     Dosage: 40 MG/DAY (1 TABLET/DAY)
     Route: 048

REACTIONS (2)
  - Hyperthyroidism [Recovering/Resolving]
  - Cardiac failure [None]
